FAERS Safety Report 25819600 (Version 1)
Quarter: 2025Q3

REPORT INFORMATION
  Report Type: Spontaneous
  Country: CA (occurrence: CA)
  Receive Date: 20250918
  Receipt Date: 20250918
  Transmission Date: 20251020
  Serious: Yes (Hospitalization, Other)
  Sender: TAKEDA
  Company Number: CA-TAKEDA-2025TUS081580

PATIENT
  Age: 18 Year
  Sex: Female

DRUGS (2)
  1. LISDEXAMFETAMINE DIMESYLATE [Suspect]
     Active Substance: LISDEXAMFETAMINE DIMESYLATE
     Indication: Attention deficit hyperactivity disorder
     Dosage: 60 MILLIGRAM, QD
  2. LISDEXAMFETAMINE DIMESYLATE [Suspect]
     Active Substance: LISDEXAMFETAMINE DIMESYLATE

REACTIONS (9)
  - Cardiac arrest [Recovering/Resolving]
  - Cardiac failure acute [Recovering/Resolving]
  - Cardiogenic shock [Recovering/Resolving]
  - Intentional overdose [Recovering/Resolving]
  - Pleuritic pain [Recovering/Resolving]
  - Respiratory failure [Recovering/Resolving]
  - Sputum abnormal [Recovering/Resolving]
  - Stress cardiomyopathy [Recovering/Resolving]
  - Suicidal ideation [Recovering/Resolving]
